FAERS Safety Report 25538904 (Version 5)
Quarter: 2025Q3

REPORT INFORMATION
  Report Type: Spontaneous
  Country: US (occurrence: US)
  Receive Date: 20250710
  Receipt Date: 20250903
  Transmission Date: 20251021
  Serious: No
  Sender: PFIZER
  Company Number: US-PFIZER INC-202500102782

PATIENT
  Age: 10 Year
  Sex: Female
  Weight: 25.996 kg

DRUGS (3)
  1. GENOTROPIN [Suspect]
     Active Substance: SOMATROPIN
     Indication: Growth hormone deficiency
     Dosage: 1.2 MG, ALTERNATE DAY, (ALTERNATE 1.2/1.4 MG) MG/DAY 6 DAYS/WEEK
  2. GENOTROPIN [Suspect]
     Active Substance: SOMATROPIN
     Indication: Hypopituitarism
     Dosage: 1.4 MG, ALTERNATE DAY, (ALTERNATE 1.2/1.4 MG) MG/DAY 6 DAYS/WEEK
  3. GENOTROPIN [Suspect]
     Active Substance: SOMATROPIN
     Dosage: 1.4 MG, 1X/DAY, 6 DAYS/WEEK
     Dates: start: 202406

REACTIONS (2)
  - Drug dose omission by device [Unknown]
  - Device leakage [Unknown]
